FAERS Safety Report 4865138-3 (Version None)
Quarter: 2005Q4

REPORT INFORMATION
  Report Type: 
  Country: None (occurrence: None)
  Receive Date: 20051223
  Receipt Date: 20051205
  Transmission Date: 20060501
  Serious: Yes (Hospitalization, Other)
  Sender: FDA-Public Use
  Company Number: US-BRISTOL-MYERS SQUIBB COMPANY-13204318

PATIENT
  Age: 49 Year
  Sex: Female
  Weight: 94 kg

DRUGS (9)
  1. CETUXIMAB [Suspect]
     Indication: SQUAMOUS CELL CARCINOMA
     Dosage: INITIATED AT 400 MG/M2 ON 03-NOV-2005. TOTAL DOSE ADMINISTERED THIS COURSE = 2300 MG.
     Route: 042
     Dates: start: 20051123, end: 20051123
  2. DOCETAXEL [Suspect]
     Indication: SQUAMOUS CELL CARCINOMA
     Dosage: INITIATED ON 03-NOV-2005.  TOTAL DOSE ADMINISTERED THIS COURSE = 90 MG.
     Route: 042
     Dates: start: 20051123, end: 20051123
  3. RADIATION THERAPY [Suspect]
     Indication: SQUAMOUS CELL CARCINOMA
     Dosage: INITIATED ON 03-NOV-2005.  TOTAL DOSE TO DATE: 2600 CGY/13 FRACTIONS/22 ELAPSED DAYS.
     Dates: start: 20051128, end: 20051128
  4. ACTIQ [Suspect]
  5. ATIVAN [Suspect]
  6. DURAGESIC-100 [Suspect]
     Route: 062
  7. LORTAB [Suspect]
  8. OXAZEPAM [Suspect]
  9. ACTOS [Concomitant]

REACTIONS (4)
  - HYPOXIA [None]
  - MUCOSAL INFLAMMATION [None]
  - ORAL PAIN [None]
  - SOMNOLENCE [None]
